APPROVED DRUG PRODUCT: VALSTAR PRESERVATIVE FREE
Active Ingredient: VALRUBICIN
Strength: 40MG/ML
Dosage Form/Route: SOLUTION;INTRAVESICAL
Application: N020892 | Product #001 | TE Code: AO
Applicant: ENDO OPERATIONS LTD
Approved: Sep 25, 1998 | RLD: Yes | RS: Yes | Type: RX